FAERS Safety Report 15864676 (Version 1)
Quarter: 2019Q1

REPORT INFORMATION
  Report Type: Spontaneous
  Country: US (occurrence: US)
  Receive Date: 20190124
  Receipt Date: 20190124
  Transmission Date: 20190417
  Serious: No
  Sender: FDA-Public Use
  Company Number: US-ALLERGAN-1801195US

PATIENT
  Sex: Male

DRUGS (1)
  1. PRED FORTE [Suspect]
     Active Substance: PREDNISOLONE ACETATE
     Indication: PRODUCT USED FOR UNKNOWN INDICATION
     Dosage: 8-12 TIMES/DAY
     Route: 047
     Dates: end: 201707

REACTIONS (4)
  - Eye pain [Unknown]
  - Intentional product misuse [Unknown]
  - Eye inflammation [Unknown]
  - Drug ineffective [Unknown]
